FAERS Safety Report 14532332 (Version 1)
Quarter: 2018Q1

REPORT INFORMATION
  Report Type: Spontaneous
  Country: HR (occurrence: HR)
  Receive Date: 20180214
  Receipt Date: 20180214
  Transmission Date: 20180509
  Serious: Yes (Other)
  Sender: FDA-Public Use
  Company Number: HR-SA-2018SA026738

PATIENT
  Sex: Male

DRUGS (10)
  1. LEFLUNOMIDE. [Suspect]
     Active Substance: LEFLUNOMIDE
     Route: 048
  2. METHOTREXAT [Suspect]
     Active Substance: METHOTREXATE
     Route: 048
     Dates: start: 2013, end: 2016
  3. LACIDIPINE [Concomitant]
     Active Substance: LACIDIPINE
     Route: 065
  4. INSULIN GLARGINE [Concomitant]
     Active Substance: INSULIN GLARGINE
     Route: 065
  5. EUCREAS [Concomitant]
     Active Substance: METFORMIN HYDROCHLORIDE\VILDAGLIPTIN
     Route: 065
  6. IBUPROFEN. [Concomitant]
     Active Substance: IBUPROFEN
     Route: 065
  7. COSENTYX [Concomitant]
     Active Substance: SECUKINUMAB
     Route: 058
  8. ALLOPURINOL. [Concomitant]
     Active Substance: ALLOPURINOL
     Route: 065
  9. PERINDOPRIL [Concomitant]
     Active Substance: PERINDOPRIL
     Route: 065
  10. ROSUVASTATIN. [Concomitant]
     Active Substance: ROSUVASTATIN
     Route: 065

REACTIONS (19)
  - C-reactive protein increased [Unknown]
  - Oedema [Recovered/Resolved]
  - Arthralgia [Unknown]
  - Joint swelling [Unknown]
  - Iron binding capacity total decreased [Unknown]
  - Dupuytren^s contracture [Recovered/Resolved]
  - Blood pressure systolic increased [Unknown]
  - Dactylitis [Unknown]
  - Nausea [Unknown]
  - Drug intolerance [Unknown]
  - Joint ankylosis [Recovered/Resolved]
  - Glycosylated haemoglobin increased [Unknown]
  - Back pain [Unknown]
  - Blood selenium decreased [Unknown]
  - Pelvic pain [Unknown]
  - Drug interaction [Unknown]
  - Blood bilirubin increased [Unknown]
  - Musculoskeletal stiffness [Recovered/Resolved]
  - Dizziness [Unknown]
